FAERS Safety Report 9046408 (Version 2)
Quarter: 2013Q1

REPORT INFORMATION
  Report Type: Spontaneous
  Country: BR (occurrence: BR)
  Receive Date: 20130201
  Receipt Date: 20130220
  Transmission Date: 20140127
  Serious: No
  Sender: FDA-Public Use
  Company Number: BR-JNJFOC-20130116413

PATIENT
  Age: 0 None
  Sex: Male
  Weight: 8.5 kg

DRUGS (1)
  1. TYLENOL GOTAS [Suspect]
     Indication: EAR PAIN
     Route: 048
     Dates: start: 20130124

REACTIONS (1)
  - Somnolence [Recovered/Resolved]
